FAERS Safety Report 4534261-5 (Version None)
Quarter: 2004Q4

REPORT INFORMATION
  Report Type: 
  Country: None (occurrence: None)
  Receive Date: 20041214
  Receipt Date: 20040818
  Transmission Date: 20050328
  Serious: No
  Sender: FDA-Public Use
  Company Number: USA040875858

PATIENT
  Age: 65 Year
  Sex: Male
  Weight: 89 kg

DRUGS (13)
  1. CIALIS [Suspect]
     Indication: ERECTILE DYSFUNCTION
     Dosage: 20 MG
     Dates: start: 20040812
  2. ALTACE (RAMIPRIL) [Concomitant]
  3. TENORMIN (ATENOLOL EG) [Concomitant]
  4. FLOMAX MR (TAMSULOSIN HYDROCHLORIDE) [Concomitant]
  5. DAYPRO [Concomitant]
  6. MULTIVITAMIN [Concomitant]
  7. VITAMIN E [Concomitant]
  8. FISH OIL [Concomitant]
  9. VITAMIN B-12 [Concomitant]
  10. GARLIC [Concomitant]
  11. CALCIUM [Concomitant]
  12. ASPIRIN (ACDTYLSALICYLIC ACID) [Concomitant]
  13. FIBER [Concomitant]

REACTIONS (1)
  - DRUG INEFFECTIVE [None]
